FAERS Safety Report 9535546 (Version 2)
Quarter: 2013Q3

REPORT INFORMATION
  Report Type: Spontaneous
  Country: US (occurrence: US)
  Receive Date: 20130919
  Receipt Date: 20130919
  Transmission Date: 20140515
  Serious: Yes (Hospitalization)
  Sender: FDA-Public Use
  Company Number: US-AMGEN-USASP2013061791

PATIENT
  Age: 61 Year
  Sex: Female

DRUGS (19)
  1. ENBREL [Suspect]
     Indication: RHEUMATOID ARTHRITIS
     Dosage: 50 MG, QWK
     Route: 058
     Dates: start: 20130815
  2. SINGULAIR [Concomitant]
     Dosage: 10 MG, UNK
  3. TYLENOL WITH CODEINE NO.3 [Concomitant]
     Dosage: UNK
  4. FLUTICASONE [Concomitant]
     Dosage: 50 MUG, UNK
  5. PREDNISONE [Concomitant]
     Dosage: 1 MG, UNK
  6. ZYRTEC [Concomitant]
     Dosage: 10 MG, UNK
  7. DULERA [Concomitant]
     Dosage: 100-5 MCG
  8. ARAVA [Concomitant]
     Dosage: 10 MG, UNK
  9. REGLAN                             /00041902/ [Concomitant]
     Dosage: 5 MG, UNK
  10. TRAMADOL HCL [Concomitant]
     Dosage: 50 MG, UNK
  11. LEVOTHYROXIN [Concomitant]
     Dosage: 100 MUG, UNK
  12. NEXIUM                             /01479303/ [Concomitant]
     Dosage: 20 MG, UNK
  13. VERAPAMIL [Concomitant]
     Dosage: 100 MG, UNK
  14. SPIRIVA HANDIHALER [Concomitant]
     Dosage: UNK
  15. HYDROCODONE/APAP [Concomitant]
     Dosage: 10-300 MG
  16. MAGNESIUM [Concomitant]
     Dosage: 200 MG, UNK
  17. VITAMIN D                          /00107901/ [Concomitant]
     Dosage: 1000 UNIT, UNK
  18. CALCIUM [Concomitant]
     Dosage: 500 UNK, UNK
  19. EDARBI [Concomitant]
     Dosage: 40 MG, UNK

REACTIONS (3)
  - Arthralgia [Not Recovered/Not Resolved]
  - Myalgia [Unknown]
  - Pneumonia [Unknown]
